FAERS Safety Report 14414718 (Version 1)
Quarter: 2018Q1

REPORT INFORMATION
  Report Type: Spontaneous
  Country: KR (occurrence: KR)
  Receive Date: 20180120
  Receipt Date: 20180120
  Transmission Date: 20180509
  Serious: Yes (Hospitalization)
  Sender: FDA-Public Use
  Company Number: KR-INGENUS PHARMACEUTICALS NJ, LLC-ING201801-000022

PATIENT
  Age: 73 Year
  Sex: Female

DRUGS (4)
  1. CARISOPRODOL AND ASPIRIN [Suspect]
     Active Substance: ASPIRIN\CARISOPRODOL
     Indication: VASCULAR STENT THROMBOSIS
  2. CARISOPRODOL AND ASPIRIN [Suspect]
     Active Substance: ASPIRIN\CARISOPRODOL
  3. TICAGRELOR. [Suspect]
     Active Substance: TICAGRELOR
  4. TICAGRELOR. [Suspect]
     Active Substance: TICAGRELOR
     Indication: VASCULAR STENT THROMBOSIS

REACTIONS (2)
  - Epistaxis [Recovered/Resolved]
  - Haemoptysis [Recovered/Resolved]
